FAERS Safety Report 7343424-5 (Version None)
Quarter: 2011Q1

REPORT INFORMATION
  Report Type: 
  Country: None (occurrence: None)
  Receive Date: 20110310
  Receipt Date: 20100122
  Transmission Date: 20110831
  Serious: No
  Sender: FDA-Public Use
  Company Number: US-BAYER-201012294NA

PATIENT
  Age: 47 Year
  Sex: Female

DRUGS (1)
  1. MIRENA [Suspect]
     Indication: MENSTRUATION IRREGULAR
     Dosage: 20 ?G/D, CONT
     Dates: start: 20090119, end: 20091101

REACTIONS (3)
  - DEVICE EXPULSION [None]
  - VAGINAL HAEMORRHAGE [None]
  - METRORRHAGIA [None]
